FAERS Safety Report 18487552 (Version 1)
Quarter: 2020Q4

REPORT INFORMATION
  Report Type: Spontaneous
  Country: US (occurrence: US)
  Receive Date: 20201110
  Receipt Date: 20201110
  Transmission Date: 20210114
  Serious: Yes (Death, Hospitalization, Other)
  Sender: FDA-Public Use
  Company Number: US-PURDUE-USA-2020-0172536

PATIENT
  Sex: Male

DRUGS (2)
  1. HYDROMORPHONE TABLETS [Suspect]
     Active Substance: HYDROMORPHONE
     Indication: CHRONIC OBSTRUCTIVE PULMONARY DISEASE
  2. HYDROMORPHONE TABLETS [Suspect]
     Active Substance: HYDROMORPHONE
     Indication: ARTHRITIS
     Dosage: UNK
     Route: 048

REACTIONS (6)
  - Dyspnoea [Unknown]
  - Weight decreased [Unknown]
  - Hospitalisation [Unknown]
  - Death [Fatal]
  - Cerebrovascular accident [Unknown]
  - Dependence [Unknown]
